FAERS Safety Report 12816165 (Version 1)
Quarter: 2016Q4

REPORT INFORMATION
  Report Type: Spontaneous
  Country: US (occurrence: US)
  Receive Date: 20161005
  Receipt Date: 20161005
  Transmission Date: 20170207
  Serious: No
  Sender: FDA-Public Use
  Company Number: US-AMGEN-USASP2015133479

PATIENT
  Age: 68 Year
  Sex: Female

DRUGS (1)
  1. PROLIA [Suspect]
     Active Substance: DENOSUMAB
     Indication: OSTEOPOROSIS POSTMENOPAUSAL
     Dosage: UNK UNK, UNK
     Route: 065
     Dates: start: 20151120

REACTIONS (10)
  - Flushing [Unknown]
  - Nervousness [Unknown]
  - Fatigue [Unknown]
  - Vomiting [Unknown]
  - Joint warmth [Unknown]
  - Feeling abnormal [Unknown]
  - Diarrhoea [Unknown]
  - Back pain [Unknown]
  - Syncope [Unknown]
  - Headache [Unknown]
